FAERS Safety Report 4354086-3 (Version None)
Quarter: 2004Q2

REPORT INFORMATION
  Report Type: 
  Country: None (occurrence: None)
  Receive Date: 20040503
  Receipt Date: 20040422
  Transmission Date: 20050107
  Serious: Yes (Other)
  Sender: FDA-Public Use
  Company Number: AU-JNJFOC-20040203501

PATIENT
  Age: 93 Year
  Sex: Female

DRUGS (12)
  1. RISPERDAL [Suspect]
     Indication: SCHIZOPHRENIA
     Dosage: 12.5 MG, 1 IN 1 DAY, ORAL
     Route: 048
     Dates: start: 20030505, end: 20040110
  2. LANOXIN-PG (TABLETS) DIGOXIN [Concomitant]
  3. NITROLINGUAL SPRAY  (SPRAY) GLYCERYL TRINITREATE [Concomitant]
  4. IKOREL (NICORANDIL) [Concomitant]
  5. DIDROCAL (DIDRONEL PMO ^NORWICH EATON^) TABLETS [Concomitant]
  6. PLAVIX [Concomitant]
  7. GTN PATCH (GLYCERYL TRINITRATE) [Concomitant]
  8. METOPROLOL TARTRATE [Concomitant]
  9. LOSEC (OMEPRAZOLE) [Concomitant]
  10. MULTI VITAMIN (MULTIVITAMINS)TALBETS [Concomitant]
  11. VISCOTEARS (CARBOMER) OPTHALMIC [Concomitant]
  12. TRIMETHOPRIM [Concomitant]

REACTIONS (8)
  - AGITATION [None]
  - BILE DUCT OBSTRUCTION [None]
  - ESCHERICHIA URINARY TRACT INFECTION [None]
  - GALLBLADDER DISORDER [None]
  - HEPATITIS [None]
  - HEPATOCELLULAR DAMAGE [None]
  - LYMPHOPENIA [None]
  - PARANOIA [None]
